FAERS Safety Report 5339883-X (Version None)
Quarter: 2007Q2

REPORT INFORMATION
  Report Type: 
  Country: None (occurrence: None)
  Receive Date: 20070529
  Receipt Date: 20070522
  Transmission Date: 20071010
  Serious: Yes (Other)
  Sender: FDA-Public Use
  Company Number: 2007SP005054

PATIENT
  Age: 52 Year
  Sex: Female

DRUGS (3)
  1. PEG-INTRON [Suspect]
     Indication: HEPATITIS C
     Dosage: 120 MCG; QW; SC
     Route: 058
     Dates: start: 20070311
  2. RIBAVIRIN [Suspect]
     Indication: HEPATITIS C
     Dosage: SEE IMAGE
     Route: 048
     Dates: start: 20070311
  3. SEROQUEL [Concomitant]

REACTIONS (17)
  - CONTUSION [None]
  - DECREASED APPETITE [None]
  - DEHYDRATION [None]
  - DISORIENTATION [None]
  - DIZZINESS [None]
  - DRY MOUTH [None]
  - DYSGEUSIA [None]
  - FALL [None]
  - FLUID INTAKE REDUCED [None]
  - GLOSSITIS [None]
  - GLOSSODYNIA [None]
  - MOUTH ULCERATION [None]
  - MUSCLE SPASMS [None]
  - NAUSEA [None]
  - ORTHOSTATIC HYPOTENSION [None]
  - SYNCOPE [None]
  - TONGUE DISORDER [None]
